FAERS Safety Report 8502025-3 (Version None)
Quarter: 2012Q2

REPORT INFORMATION
  Report Type: 
  Country: None (occurrence: None)
  Receive Date: 20120405
  Receipt Date: 20110413
  Transmission Date: 20120825
  Serious: Yes (Other)
  Sender: FDA-Public Use
  Company Number: PHHY2011US31696

PATIENT
  Age: 76 Year
  Sex: Female

DRUGS (7)
  1. RECLAST [Suspect]
     Dosage: 5 MG,, INTRAVENOUS; 5 MG,, INTRAVENOUS; 5 MG,, INTRAVENOUS; 5 MG,, INTRAVENOUS
     Route: 042
     Dates: start: 20110104
  2. VITAMINS NOS [Concomitant]
  3. ESTER-C (CALCIUM ASCORBATE) [Concomitant]
  4. TIMOLOL MALEATE [Concomitant]
  5. NIACIN [Concomitant]
  6. CALCIUM [Concomitant]
  7. LEXAPRO [Concomitant]

REACTIONS (5)
  - BACK PAIN [None]
  - PAIN [None]
  - GAIT DISTURBANCE [None]
  - ARTHRALGIA [None]
  - FATIGUE [None]
